FAERS Safety Report 23722555 (Version 1)
Quarter: 2024Q2

REPORT INFORMATION
  Report Type: Report from Study
  Country: US (occurrence: US)
  Receive Date: 20240409
  Receipt Date: 20240409
  Transmission Date: 20240716
  Serious: Yes (Congenital Anomaly)
  Sender: FDA-Public Use
  Company Number: US-GILEAD-2024-0668235

PATIENT
  Sex: Male
  Weight: 3.5 kg

DRUGS (2)
  1. EMTRICITABINE\TENOFOVIR [Suspect]
     Active Substance: EMTRICITABINE\TENOFOVIR
     Indication: HIV infection
     Dosage: 1 DOSAGE FORM, QD
     Route: 064
     Dates: start: 20230411
  2. TIVICAY [Suspect]
     Active Substance: DOLUTEGRAVIR SODIUM
     Indication: Product used for unknown indication
     Dosage: 1 DOSAGE FORM, QD
     Route: 064
     Dates: start: 20230411

REACTIONS (2)
  - Lymphatic malformation [Unknown]
  - Foetal exposure during pregnancy [Recovered/Resolved]
